FAERS Safety Report 6191002-6 (Version None)
Quarter: 2009Q2

REPORT INFORMATION
  Report Type: 
  Country: None (occurrence: None)
  Receive Date: 20090513
  Receipt Date: 20090504
  Transmission Date: 20091009
  Serious: Yes (Hospitalization)
  Sender: FDA-Public Use
  Company Number: 2009AL002786

PATIENT
  Sex: Female

DRUGS (1)
  1. DIGOXIN [Suspect]
     Dosage: PO
     Route: 048

REACTIONS (15)
  - ANHEDONIA [None]
  - ANXIETY [None]
  - BRADYCARDIA [None]
  - CARDIAC PACEMAKER INSERTION [None]
  - DIZZINESS [None]
  - ECONOMIC PROBLEM [None]
  - FAMILY STRESS [None]
  - INJURY [None]
  - LOSS OF EMPLOYMENT [None]
  - PAIN [None]
  - RENAL DISORDER [None]
  - SOCIAL PROBLEM [None]
  - SYNCOPE [None]
  - THERAPEUTIC AGENT TOXICITY [None]
  - VOMITING [None]
